FAERS Safety Report 18600075 (Version 6)
Quarter: 2023Q1

REPORT INFORMATION
  Report Type: Report from Study
  Country: IT (occurrence: IT)
  Receive Date: 20201210
  Receipt Date: 20230224
  Transmission Date: 20230418
  Serious: Yes (Hospitalization, Other)
  Sender: FDA-Public Use
  Company Number: IT-ROCHE-2026263

PATIENT
  Sex: Female
  Weight: 77 kg

DRUGS (37)
  1. TRASTUZUMAB [Suspect]
     Active Substance: TRASTUZUMAB
     Indication: Breast cancer metastatic
     Dosage: MOST RECENT DOSE PRIOR TO THE EVENT: 5-JAN-2018
     Route: 042
     Dates: start: 20170726, end: 20170726
  2. TRASTUZUMAB [Suspect]
     Active Substance: TRASTUZUMAB
     Dosage: 6 MILLIGRAM/KILOGRAM, Q3W
     Route: 042
     Dates: start: 20170818, end: 20170818
  3. TRASTUZUMAB [Suspect]
     Active Substance: TRASTUZUMAB
     Dosage: 560 MILLIGRAM, Q3W
     Route: 042
     Dates: start: 20171206, end: 20171206
  4. TRASTUZUMAB [Suspect]
     Active Substance: TRASTUZUMAB
     Dosage: 6 MILLIGRAM/KILOGRAM, Q3W
     Route: 042
     Dates: start: 20180105, end: 20210503
  5. LETROZOLE [Suspect]
     Active Substance: LETROZOLE
     Indication: Breast cancer metastatic
     Dosage: 2.5 MILLIGRAM, QD (START DATE: 09-FEB-2018)
     Route: 048
     Dates: start: 20180209
  6. DOCETAXEL [Suspect]
     Active Substance: DOCETAXEL
     Indication: Breast cancer metastatic
     Dosage: ON 06-SEP-2017, SHE RECEIVED MOST RECENT DOSE
     Route: 042
     Dates: start: 20170726, end: 20170906
  7. DOCETAXEL [Suspect]
     Active Substance: DOCETAXEL
     Dosage: 100 MILLIGRAM, Q3W
     Route: 042
     Dates: start: 20170906, end: 20170927
  8. DOCETAXEL [Suspect]
     Active Substance: DOCETAXEL
     Dosage: 65 MILLIGRAM/SQ. METER, Q3W
     Route: 042
     Dates: start: 20170906, end: 20180126
  9. LETROZOLE [Suspect]
     Active Substance: LETROZOLE
     Indication: Breast cancer metastatic
     Dosage: 2.5 MILLIGRAM, QD (START DATE: 09-FEB-2018)
     Route: 048
     Dates: start: 20180209
  10. TAXOTERE [Suspect]
     Active Substance: DOCETAXEL
     Indication: Breast cancer metastatic
     Dosage: 75 MILLIGRAM/SQ. METER, Q3W,
     Route: 042
     Dates: start: 20170726, end: 20170906
  11. TAXOTERE [Suspect]
     Active Substance: DOCETAXEL
     Dosage: 75 MILLIGRAM/SQ. METER, Q3W (ON 06/SEP/2017, SHE RECEIVED MOST RECENT DOSE OF DOCE
     Route: 042
     Dates: start: 20170726
  12. PERTUZUMAB [Suspect]
     Active Substance: PERTUZUMAB
     Indication: Breast cancer metastatic
     Dosage: MOST RECENT DOSE PRIOR TO THE EVENT: 05-OCT-2018
     Route: 042
     Dates: start: 20170818, end: 20170818
  13. PERTUZUMAB [Suspect]
     Active Substance: PERTUZUMAB
     Dosage: 420 MILLIGRAM, Q3W
     Route: 042
     Dates: start: 20170906, end: 20171018
  14. PERTUZUMAB [Suspect]
     Active Substance: PERTUZUMAB
     Dosage: 840 MILLIGRAM, Q3W
     Route: 042
     Dates: start: 20171206, end: 20171206
  15. PERTUZUMAB [Suspect]
     Active Substance: PERTUZUMAB
     Dosage: 420 MILLIGRAM, Q3W
     Route: 042
     Dates: start: 20180105, end: 20210503
  16. VALPROATE SODIUM [Concomitant]
     Active Substance: VALPROATE SODIUM
     Dosage: (START DATE:08-NOV-2018) ONGOING = CHECKED
     Route: 065
     Dates: start: 20181108, end: 20190127
  17. VALPROATE SODIUM [Concomitant]
     Active Substance: VALPROATE SODIUM
     Dosage: (START DATE: 28-JAN-2019) ONGOING = CHECKED
     Route: 065
     Dates: start: 20190128
  18. LEVOTHYROXINE SODIUM [Concomitant]
     Active Substance: LEVOTHYROXINE SODIUM
     Dosage: UNK
     Route: 065
  19. CHLORPHENIRAMINE MALEATE [Concomitant]
     Active Substance: CHLORPHENIRAMINE MALEATE
     Dosage: UNK,ONGOING = CHECKED
     Route: 065
     Dates: start: 20170726
  20. UREA [Concomitant]
     Active Substance: UREA
     Indication: Pruritus
     Dosage: ONGOING = NOT CHECKED (START DATE: 26-SEP-2018)
     Route: 065
     Dates: start: 20180926, end: 20190110
  21. LOPERAMIDE [Concomitant]
     Active Substance: LOPERAMIDE
     Indication: Diarrhoea
     Dosage: UNK (ONGOING = CHECKED )
     Route: 065
     Dates: start: 20170906, end: 20191018
  22. LOPERAMIDE [Concomitant]
     Active Substance: LOPERAMIDE
     Dosage: DRUG START DATE: 26-JAN-2018, ONGOING = CHECKED
     Route: 065
     Dates: start: 20180126
  23. EN [Concomitant]
     Active Substance: DELORAZEPAM
     Indication: Major depression
     Dosage: UNK
     Route: 065
     Dates: start: 20131218, end: 20171113
  24. EN [Concomitant]
     Active Substance: DELORAZEPAM
     Dosage: UNK
     Route: 065
     Dates: start: 20171113
  25. CETIRIZINE HYDROCHLORIDE [Concomitant]
     Active Substance: CETIRIZINE HYDROCHLORIDE
     Indication: Pruritus
     Dosage: (START DATE: 02-OCT-2018) ONGOING = CHECKED
     Route: 065
     Dates: start: 20181002, end: 20181215
  26. KCL [Concomitant]
     Active Substance: POTASSIUM CHLORIDE
     Dosage: UNK (START DATE: 27-APR-2018)ONGOING = CHECKED
     Route: 065
     Dates: start: 20180427
  27. KCL [Concomitant]
     Active Substance: POTASSIUM CHLORIDE
     Dosage: ONGOING = CHECKED
     Route: 065
     Dates: start: 20210731
  28. TELMISARTAN [Concomitant]
     Active Substance: TELMISARTAN
     Dosage: UNK
     Route: 065
     Dates: start: 20100310
  29. DELORAZEPAM [Concomitant]
     Active Substance: DELORAZEPAM
     Indication: Major depression
     Dosage: UNK
     Route: 065
     Dates: start: 20131218, end: 20171113
  30. DELORAZEPAM [Concomitant]
     Active Substance: DELORAZEPAM
     Dosage: UNK
     Route: 065
     Dates: start: 20171113
  31. LORAZEPAM [Concomitant]
     Active Substance: LORAZEPAM
     Indication: Major depression
     Dosage: UNK (START DATE: 10-JAN-2019)
     Route: 065
  32. SOLIFENACINA [Concomitant]
     Indication: Urinary incontinence
     Dosage: UNK (START DATE: 31-JUL-2020)
     Route: 065
     Dates: start: 20200731
  33. POTASSIUM ASPARTATE [Concomitant]
     Active Substance: POTASSIUM ASPARTATE
     Indication: Hypokalaemia
     Dosage: UNK (START DATE: 30-JAN-2020)
     Route: 065
     Dates: start: 20200130
  34. MAGNESIUM SULFATE [Concomitant]
     Active Substance: MAGNESIUM SULFATE
     Indication: Hypomagnesaemia
     Dosage: UNK (START DATE: 3-APR-2020)
     Route: 065
     Dates: start: 20200403, end: 20210503
  35. MAGNESIUM [Concomitant]
     Active Substance: MAGNESIUM
     Indication: Hypomagnesaemia
     Dosage: START DATE: 27-APR-2018,ONGOING = CHECKED
     Route: 065
     Dates: start: 20180427
  36. MAGNESIUM [Concomitant]
     Active Substance: MAGNESIUM
     Dosage: DRUG START DATE: 22-MAR-2021,ONGOING =CHECKED
     Route: 065
     Dates: start: 20210322
  37. VALPROIC ACID [Concomitant]
     Active Substance: VALPROIC ACID
     Dosage: ONGOING = CHECKED
     Route: 065
     Dates: start: 20190128

REACTIONS (1)
  - Major depression [Recovered/Resolved]
